FAERS Safety Report 10600830 (Version 1)
Quarter: 2014Q4

REPORT INFORMATION
  Report Type: Spontaneous
  Country: US (occurrence: None)
  Receive Date: 20141121
  Receipt Date: 20141121
  Transmission Date: 20150529
  Serious: Yes (Other)
  Sender: FDA-Public Use
  Company Number: None

PATIENT
  Age: 51 Year
  Sex: Female
  Weight: 80.29 kg

DRUGS (1)
  1. BELVIQ [Suspect]
     Active Substance: LORCASERIN HYDROCHLORIDE
     Indication: WEIGHT CONTROL
     Route: 048
     Dates: start: 19011120, end: 20140308

REACTIONS (9)
  - Drug ineffective [None]
  - Fear [None]
  - Crying [None]
  - Job dissatisfaction [None]
  - Abnormal behaviour [None]
  - Frustration [None]
  - Emotional disorder [None]
  - Amnesia [None]
  - Depression [None]

NARRATIVE: CASE EVENT DATE: 20140428
